FAERS Safety Report 20025452 (Version 1)
Quarter: 2021Q4

REPORT INFORMATION
  Report Type: Spontaneous
  Country: US (occurrence: US)
  Receive Date: 20211102
  Receipt Date: 20211102
  Transmission Date: 20220304
  Serious: No
  Sender: FDA-Public Use
  Company Number: US-009507513-2110USA001656

PATIENT
  Age: 63 Year
  Sex: Female

DRUGS (1)
  1. BELSOMRA [Suspect]
     Active Substance: SUVOREXANT
     Dosage: 15 MILLIGRAM
     Route: 048

REACTIONS (3)
  - Dry mouth [Unknown]
  - Cough [Unknown]
  - Nightmare [Unknown]
